FAERS Safety Report 13825844 (Version 1)
Quarter: 2017Q3

REPORT INFORMATION
  Report Type: Spontaneous
  Country: RU (occurrence: RU)
  Receive Date: 20170802
  Receipt Date: 20170802
  Transmission Date: 20171127
  Serious: Yes (Other)
  Sender: FDA-Public Use
  Company Number: RU-ASTRAZENECA-2017SE77750

PATIENT
  Age: 71 Year
  Sex: Male
  Weight: 100 kg

DRUGS (6)
  1. TRIGRIM [Concomitant]
  2. BRILINTA [Suspect]
     Active Substance: TICAGRELOR
     Indication: CORONARY ARTERY BYPASS
     Route: 048
     Dates: start: 20140314
  3. LIPRIMAR [Concomitant]
     Active Substance: ATORVASTATIN CALCIUM
  4. BETALOK [Concomitant]
     Active Substance: METOPROLOL SUCCINATE
  5. GLUCOFAGE [Concomitant]
  6. TROMBO ASS [Concomitant]

REACTIONS (4)
  - Joint dislocation [Not Recovered/Not Resolved]
  - Product use issue [Unknown]
  - Type 2 diabetes mellitus [Not Recovered/Not Resolved]
  - Off label use [Unknown]

NARRATIVE: CASE EVENT DATE: 201704
